FAERS Safety Report 7379117-8 (Version None)
Quarter: 2011Q1

REPORT INFORMATION
  Report Type: 
  Country: None (occurrence: None)
  Receive Date: 20110328
  Receipt Date: 20110317
  Transmission Date: 20110831
  Serious: Yes (Other)
  Sender: FDA-Public Use
  Company Number: PR-BAXTER-2009BH002302

PATIENT
  Age: 30 Year
  Sex: Female
  Weight: 54 kg

DRUGS (4)
  1. HEPARIN SODIUM INJECTION [Suspect]
     Indication: PULMONARY EMBOLISM
     Route: 058
     Dates: start: 20071117
  2. OXYTOCIN [Concomitant]
     Indication: PRECIPITATE LABOUR
     Route: 042
     Dates: start: 20071113, end: 20071113
  3. LIDOCAINE [Concomitant]
     Indication: PRECIPITATE LABOUR
     Route: 065
     Dates: start: 20071113, end: 20071113
  4. HEPARIN SODIUM 1,000 UNITS AND SODIUM CHLORIDE 0.9% [Suspect]
     Indication: PRODUCT USED FOR UNKNOWN INDICATION
     Route: 042
     Dates: end: 20071118

REACTIONS (20)
  - TREMOR [None]
  - CHEST PAIN [None]
  - VISION BLURRED [None]
  - ANXIETY DISORDER [None]
  - NAUSEA [None]
  - HYPERTENSION [None]
  - DYSPNOEA [None]
  - GASTRITIS [None]
  - PALPITATIONS [None]
  - MENTAL IMPAIRMENT [None]
  - HEART RATE IRREGULAR [None]
  - BURNING SENSATION [None]
  - SYNCOPE [None]
  - BACK PAIN [None]
  - ABDOMINAL PAIN [None]
  - VOMITING [None]
  - RASH GENERALISED [None]
  - URTICARIA [None]
  - PANIC DISORDER [None]
  - HYPERSENSITIVITY [None]
